FAERS Safety Report 20414862 (Version 1)
Quarter: 2022Q1

REPORT INFORMATION
  Report Type: Report from Study
  Country: NL (occurrence: NL)
  Receive Date: 20220202
  Receipt Date: 20220202
  Transmission Date: 20220423
  Serious: Yes (Hospitalization)
  Sender: FDA-Public Use
  Company Number: NL-KOREA IPSEN Pharma-2022-01984

PATIENT
  Sex: Male

DRUGS (1)
  1. LANREOTIDE ACETATE [Suspect]
     Active Substance: LANREOTIDE ACETATE
     Indication: Neuroendocrine tumour
     Dosage: 1.00 X PER 4 WEEKS
     Route: 058
     Dates: start: 20190509, end: 20220125

REACTIONS (1)
  - Neoplasm [Unknown]
